FAERS Safety Report 16766729 (Version 5)
Quarter: 2020Q2

REPORT INFORMATION
  Report Type: Spontaneous
  Country: US (occurrence: US)
  Receive Date: 20190903
  Receipt Date: 20200602
  Transmission Date: 20200713
  Serious: Yes (Other)
  Sender: FDA-Public Use
  Company Number: US-PFIZER INC-2019372525

PATIENT
  Age: 50 Year
  Sex: Female
  Weight: 77.55 kg

DRUGS (4)
  1. RELPAX [Suspect]
     Active Substance: ELETRIPTAN HYDROBROMIDE
     Indication: MIGRAINE
     Dosage: 40 MG, 2X/WEEK
     Route: 048
  2. EMGALITY [Concomitant]
     Active Substance: GALCANEZUMAB-GNLM
     Dosage: UNK
     Dates: end: 201907
  3. RELPAX [Suspect]
     Active Substance: ELETRIPTAN HYDROBROMIDE
     Dosage: 20 MG, UNK
     Route: 048
  4. RELPAX [Suspect]
     Active Substance: ELETRIPTAN HYDROBROMIDE
     Dosage: 40 MG, UNK (TOOK ONE 40 MG)
     Route: 048

REACTIONS (10)
  - Somnolence [Unknown]
  - Malaise [Unknown]
  - Oral discomfort [Unknown]
  - Dysstasia [Unknown]
  - Arthralgia [Unknown]
  - Cerebrovascular accident [Unknown]
  - Fatigue [Unknown]
  - Blindness unilateral [Not Recovered/Not Resolved]
  - Pain [Unknown]
  - Myalgia [Unknown]

NARRATIVE: CASE EVENT DATE: 2011
